FAERS Safety Report 5400456-1 (Version None)
Quarter: 2007Q3

REPORT INFORMATION
  Report Type: 
  Country: None (occurrence: None)
  Receive Date: 20070730
  Receipt Date: 20070718
  Transmission Date: 20080115
  Serious: Yes (Hospitalization)
  Sender: FDA-Public Use
  Company Number: CNWYE054219JUL07

PATIENT
  Age: 50 Year
  Sex: Male

DRUGS (1)
  1. EFFEXOR XR [Suspect]
     Dosage: 150MG/D FOR  ONE WEEK THEN DOSE REDUCED TO 37.5MG/D IN THREE WEEKS
     Route: 048
     Dates: start: 20070101, end: 20070101

REACTIONS (5)
  - CARDIAC FAILURE [None]
  - COLD SWEAT [None]
  - OEDEMA PERIPHERAL [None]
  - PERIPHERAL COLDNESS [None]
  - SUFFOCATION FEELING [None]
